FAERS Safety Report 19450670 (Version 5)
Quarter: 2022Q1

REPORT INFORMATION
  Report Type: Report from Study
  Country: FR (occurrence: FR)
  Receive Date: 20210622
  Receipt Date: 20220322
  Transmission Date: 20220423
  Serious: Yes (Hospitalization, Other)
  Sender: FDA-Public Use
  Company Number: FR-BRISTOL-MYERS SQUIBB COMPANY-BMS-2021-058577

PATIENT
  Age: 76 Year
  Sex: Female
  Weight: 65 kg

DRUGS (24)
  1. NIVOLUMAB [Suspect]
     Active Substance: NIVOLUMAB
     Indication: Colorectal cancer metastatic
     Dosage: 240 MILLIGRAM
     Route: 042
     Dates: start: 20200730, end: 20201020
  2. IPILIMUMAB [Suspect]
     Active Substance: IPILIMUMAB
     Indication: Colorectal cancer metastatic
     Dosage: 60 MILLIGRAM
     Route: 042
     Dates: start: 20200730, end: 20201020
  3. OXALIPLATIN [Suspect]
     Active Substance: OXALIPLATIN
     Indication: Colorectal cancer metastatic
     Dosage: 144 MILLIGRAM
     Route: 042
     Dates: start: 20200302, end: 20200608
  4. FLUOROURACIL [Suspect]
     Active Substance: FLUOROURACIL
     Indication: Colorectal cancer metastatic
     Dosage: 675 MILLIGRAM
     Route: 042
     Dates: start: 20200302, end: 20200709
  5. LEUCOVORIN [Suspect]
     Active Substance: LEUCOVORIN
     Indication: Colorectal cancer metastatic
     Dosage: 675 MILLIGRAM
     Route: 042
     Dates: start: 20200302, end: 20200707
  6. NIVOLUMAB [Suspect]
     Active Substance: NIVOLUMAB
     Indication: Colorectal cancer metastatic
     Dosage: 240 MILLIGRAM
     Route: 042
     Dates: start: 20200730, end: 20201020
  7. METHYLPREDNISOLONE [Concomitant]
     Active Substance: METHYLPREDNISOLONE
     Indication: Nausea
     Dosage: 20 MILLIGRAM
     Route: 048
     Dates: start: 20200416
  8. METHYLPREDNISOLONE [Concomitant]
     Active Substance: METHYLPREDNISOLONE
     Indication: Colitis
     Dosage: 40 MILLIGRAM
     Route: 048
     Dates: start: 20201112
  9. METHYLPREDNISOLONE [Concomitant]
     Active Substance: METHYLPREDNISOLONE
     Dosage: 10 MILLIGRAM
     Route: 048
     Dates: start: 20201222, end: 20210104
  10. FERINJECT [Concomitant]
     Active Substance: FERRIC CARBOXYMALTOSE
     Indication: Product used for unknown indication
     Dosage: 1 GRAM
     Route: 058
     Dates: start: 20200330
  11. INNOHEP [Concomitant]
     Active Substance: TINZAPARIN SODIUM
     Indication: Product used for unknown indication
     Dosage: 1 DOSAGE FORM=14000 UNIT NOS
     Route: 058
     Dates: start: 20200217
  12. DOLIPRANE [Concomitant]
     Active Substance: ACETAMINOPHEN
     Indication: Abdominal pain
     Dosage: 1 GRAM
     Route: 048
     Dates: start: 20200331
  13. PHLOROGLUCINOL\1,3,5-TRIMETHOXYBENZENE [Concomitant]
     Active Substance: PHLOROGLUCINOL\1,3,5-TRIMETHOXYBENZENE
     Indication: Abdominal pain
     Dosage: 80 MILLIGRAM
     Route: 048
     Dates: start: 20200331
  14. TRAMADOL [Concomitant]
     Active Substance: TRAMADOL
     Indication: Abdominal pain
     Dosage: 100 MILLIGRAM
     Route: 048
     Dates: start: 20200414
  15. IMODIUM [Concomitant]
     Active Substance: LOPERAMIDE HYDROCHLORIDE
     Indication: Diarrhoea
     Dosage: 6 MILLIGRAM
     Route: 048
     Dates: start: 20200302
  16. MAGNE B6 [Concomitant]
     Active Substance: MAGNESIUM\PYRIDOXINE
     Indication: Hypomagnesaemia
     Dosage: 1 DOSAGE FORM
     Route: 048
     Dates: start: 20200316
  17. TRIMEBUTINE MALEATE [Concomitant]
     Active Substance: TRIMEBUTINE MALEATE
     Indication: Abdominal pain
     Dosage: 1 DOSAGE FORM
     Route: 048
     Dates: start: 20200812
  18. SKENAN [Concomitant]
     Active Substance: MORPHINE SULFATE
     Indication: Abdominal pain
     Dosage: 20 MILLIGRAM
     Route: 048
     Dates: start: 20200827
  19. PERFALGAN [Concomitant]
     Active Substance: ACETAMINOPHEN
     Indication: Hyperthermia
     Dosage: 1 GRAM
     Route: 048
     Dates: start: 20201020
  20. ENTOCORT [Concomitant]
     Active Substance: BUDESONIDE
     Indication: Colitis
     Dosage: 9 MILLIGRAM
     Route: 048
     Dates: start: 20201112
  21. CALCIUM PHOSPHATE, DIBASIC, ANHYDROUS\MAGNESIUM GLYCEROPHOSPHATE\PHOSP [Concomitant]
     Active Substance: CALCIUM PHOSPHATE, DIBASIC, ANHYDROUS\MAGNESIUM GLYCEROPHOSPHATE\PHOSPHORIC ACID\SODIUM PHOSPHATE, D
     Indication: Hypophosphataemia
     Dosage: 1 DOSAGE FORM
     Route: 048
     Dates: start: 20200316
  22. POTASSIUM CHLORIDE [Concomitant]
     Active Substance: POTASSIUM CHLORIDE
     Indication: Hypokalaemia
     Dosage: 1 DOSAGE FORM
     Route: 048
     Dates: start: 20200316
  23. POLARAMINE [Concomitant]
     Active Substance: DEXCHLORPHENIRAMINE MALEATE
     Indication: Product used for unknown indication
     Dosage: 5 MILLIGRAM
     Route: 042
     Dates: start: 20200330
  24. AMINO ACIDS\DEXTROSE\ELECTROLYTES NOS\SOYBEAN OIL [Concomitant]
     Active Substance: AMINO ACIDS\DEXTROSE\ELECTROLYTES NOS\SOYBEAN OIL
     Indication: Renal failure
     Dosage: 1 DOSAGE FORM
     Route: 042
     Dates: start: 20201217, end: 20210104

REACTIONS (1)
  - Encephalopathy [Recovered/Resolved]

NARRATIVE: CASE EVENT DATE: 20210107
